FAERS Safety Report 25214160 (Version 1)
Quarter: 2025Q2

REPORT INFORMATION
  Report Type: Spontaneous
  Country: CA (occurrence: CA)
  Receive Date: 20250418
  Receipt Date: 20250418
  Transmission Date: 20250716
  Serious: Yes (Other)
  Sender: PFIZER
  Company Number: CA-PFIZER INC-202500079861

PATIENT
  Age: 49 Year
  Sex: Female

DRUGS (26)
  1. TUKYSA [Suspect]
     Active Substance: TUCATINIB
     Dosage: 300 MG, EVERY 3 WEEKS
  2. ENHERTU [Suspect]
     Active Substance: FAM-TRASTUZUMAB DERUXTECAN-NXKI
     Indication: Breast cancer metastatic
  3. CAPECITABINE [Suspect]
     Active Substance: CAPECITABINE
  4. ANASTROZOLE [Concomitant]
     Active Substance: ANASTROZOLE
     Dosage: 1 MG, 1X/DAY
  5. DEXAMETHASONE [Concomitant]
     Active Substance: DEXAMETHASONE
     Dosage: 4 MG, 1X/DAY
  6. DILANTIN [Concomitant]
     Active Substance: PHENYTOIN
     Dosage: 100 MG, 3X/DAY
  7. FUROSEMIDE [Concomitant]
     Active Substance: FUROSEMIDE
     Dosage: 20 MG, 1X/DAY
  8. HALOPERIDOL DECANOATE [Concomitant]
     Active Substance: HALOPERIDOL DECANOATE
  9. LETROZOLE [Concomitant]
     Active Substance: LETROZOLE
  10. LOPERAMIDE [Concomitant]
     Active Substance: LOPERAMIDE
  11. LORAZEPAM [Concomitant]
     Active Substance: LORAZEPAM
     Dosage: 1 MG, 1X/DAY
  12. MELATONIN [Concomitant]
     Active Substance: MELATONIN
     Dosage: 3 MG, 1X/DAY
  13. METOCLOPRAMIDE [Concomitant]
     Active Substance: METOCLOPRAMIDE
  14. OLANZAPINE [Concomitant]
     Active Substance: OLANZAPINE
     Dosage: 2.5 MG, 2X/DAY
  15. OLANZAPINE [Concomitant]
     Active Substance: OLANZAPINE
     Dosage: 2.5 MG, 2X/DAY
  16. OLANZAPINE [Concomitant]
     Active Substance: OLANZAPINE
     Dosage: 2.5 MG, 2X/DAY
  17. ONDANSETRON HYDROCHLORIDE [Concomitant]
     Active Substance: ONDANSETRON HYDROCHLORIDE
  18. ONDANSETRON HYDROCHLORIDE [Concomitant]
     Active Substance: ONDANSETRON HYDROCHLORIDE
  19. PANTOPRAZOLE SODIUM [Concomitant]
     Active Substance: PANTOPRAZOLE SODIUM
     Dosage: 40 MG, 1X/DAY
  20. PHENYTOIN SODIUM [Concomitant]
     Active Substance: PHENYTOIN SODIUM
     Dosage: 50 MG, 1X/DAY
  21. HIGH DENSITY POLYETHYLENE [Concomitant]
     Active Substance: HIGH DENSITY POLYETHYLENE
     Dosage: 17 MG, 1X/DAY
  22. POTASSIUM CHLORIDE [Concomitant]
     Active Substance: POTASSIUM CHLORIDE
     Dosage: 20 MEQ, 2X/DAY
  23. GOSERELIN [Concomitant]
     Active Substance: GOSERELIN
     Dosage: 10.8 MG, EVERY 3 MONTHS
  24. GOSERELIN [Concomitant]
     Active Substance: GOSERELIN
     Dosage: 10.8 MG, EVERY 3 MONTHS
  25. GOSERELIN [Concomitant]
     Active Substance: GOSERELIN
     Dosage: 10.8 MG, EVERY 3 MONTHS
  26. GOSERELIN [Concomitant]
     Active Substance: GOSERELIN
     Dosage: 10.8 MG, EVERY 3 MONTHS

REACTIONS (7)
  - Malignant neoplasm progression [Unknown]
  - Metastases to liver [Unknown]
  - Asthenia [Unknown]
  - Confusional state [Unknown]
  - Fall [Unknown]
  - Hypercalcaemia [Unknown]
  - Off label use [Unknown]
